FAERS Safety Report 9325494 (Version 2)
Quarter: 2013Q3

REPORT INFORMATION
  Report Type: Spontaneous
  Country: US (occurrence: None)
  Receive Date: 20130528
  Receipt Date: 20130703
  Transmission Date: 20140515
  Serious: Yes (Hospitalization)
  Sender: FDA-Public Use
  Company Number: CABO-13002611

PATIENT
  Age: 60 Year
  Sex: Female
  Weight: 58 kg

DRUGS (9)
  1. COMETRIQ [Suspect]
     Indication: LUNG NEOPLASM MALIGNANT
     Route: 048
     Dates: start: 20130417
  2. COMETRIQ [Suspect]
     Indication: BRONCHIAL CARCINOMA
     Route: 048
     Dates: start: 20130417
  3. COMETRIQ [Suspect]
     Indication: METASTASES TO CENTRAL NERVOUS SYSTEM
     Route: 048
     Dates: start: 20130417
  4. COMETRIQ [Suspect]
     Indication: MALIGNANT NEOPLASM OF SPINAL CORD
     Route: 048
     Dates: start: 20130417
  5. COMETRIQ [Suspect]
     Indication: METASTASIS
     Route: 048
     Dates: start: 20130417
  6. MORPHINE [Concomitant]
  7. MENTINE [Concomitant]
  8. FAMOTIDINE [Concomitant]
  9. BISCODYL [Concomitant]

REACTIONS (13)
  - Non-cardiac chest pain [None]
  - Back pain [None]
  - Somnolence [None]
  - Paraesthesia [None]
  - Feeling hot [None]
  - Dry skin [None]
  - Medication error [None]
  - Asthenia [None]
  - Confusional state [None]
  - Extra dose administered [None]
  - Fatigue [None]
  - Dizziness [None]
  - Metastases to bone [None]
